FAERS Safety Report 8050331-1 (Version None)
Quarter: 2012Q1

REPORT INFORMATION
  Report Type: 
  Country: None (occurrence: None)
  Receive Date: 20120117
  Receipt Date: 20120109
  Transmission Date: 20120608
  Serious: Yes (Hospitalization, Other)
  Sender: FDA-Public Use
  Company Number: US-PURDUE-USA-2012-0080738

PATIENT
  Sex: Male

DRUGS (2)
  1. OXYCONTIN [Suspect]
     Dosage: 40 MG, TID
     Dates: start: 20111201, end: 20111217
  2. OXYCONTIN [Suspect]
     Indication: PAIN
     Dosage: 30 MG, TID
     Route: 048
     Dates: start: 20111101, end: 20111212

REACTIONS (13)
  - WEIGHT DECREASED [None]
  - DRUG INEFFECTIVE [None]
  - INSOMNIA [None]
  - HYPERHIDROSIS [None]
  - DYSURIA [None]
  - ABDOMINAL PAIN UPPER [None]
  - NAUSEA [None]
  - PAIN [None]
  - VOMITING [None]
  - CONSTIPATION [None]
  - DECREASED APPETITE [None]
  - MALAISE [None]
  - IRRITABILITY [None]
